FAERS Safety Report 5077300-8 (Version None)
Quarter: 2006Q3

REPORT INFORMATION
  Report Type: 
  Country: None (occurrence: None)
  Receive Date: 20060810
  Receipt Date: 20060120
  Transmission Date: 20061208
  Serious: No
  Sender: FDA-Public Use
  Company Number: US-GLAXOSMITHKLINE-A0590290A

PATIENT
  Sex: Female

DRUGS (7)
  1. PAROXETINE HCL [Suspect]
     Indication: FIBROMYALGIA
     Dosage: 10MG PER DAY
     Route: 048
     Dates: start: 20050921
  2. NEURONTIN [Concomitant]
  3. AMBIEN [Concomitant]
  4. TOPROL-XL [Concomitant]
  5. PREDNISONE [Concomitant]
  6. PREVACID [Concomitant]
  7. DIOVAN [Concomitant]

REACTIONS (1)
  - INSOMNIA [None]
